FAERS Safety Report 18927603 (Version 2)
Quarter: 2021Q1

REPORT INFORMATION
  Report Type: Report from Study
  Country: BE (occurrence: BE)
  Receive Date: 20210223
  Receipt Date: 20210302
  Transmission Date: 20210420
  Serious: Yes (Death)
  Sender: FDA-Public Use
  Company Number: BE-EMD SERONO-9220422

PATIENT
  Age: 57 Year
  Sex: Female

DRUGS (1)
  1. REBIF [Suspect]
     Active Substance: INTERFERON BETA-1A
     Indication: PRODUCT USED FOR UNKNOWN INDICATION
     Route: 058
     Dates: start: 20160902

REACTIONS (1)
  - Death [Fatal]

NARRATIVE: CASE EVENT DATE: 202101
